FAERS Safety Report 14378944 (Version 1)
Quarter: 2018Q1

REPORT INFORMATION
  Report Type: Report from Study
  Country: US (occurrence: US)
  Receive Date: 20180112
  Receipt Date: 20180112
  Transmission Date: 20180509
  Serious: Yes (Other)
  Sender: FDA-Public Use
  Company Number: US-ROCHE-2050318

PATIENT
  Sex: Female
  Weight: 78.54 kg

DRUGS (4)
  1. ALECENSA [Suspect]
     Active Substance: ALECTINIB HYDROCHLORIDE
     Indication: LUNG NEOPLASM MALIGNANT
     Route: 048
     Dates: start: 201708
  2. ALECENSA [Suspect]
     Active Substance: ALECTINIB HYDROCHLORIDE
     Dosage: INCREASED DOSE TO 300MG THREE TIMES A DAY ;ONGOING: NO
     Route: 048
     Dates: start: 20171127, end: 20180101
  3. ALECENSA [Suspect]
     Active Substance: ALECTINIB HYDROCHLORIDE
     Dosage: INCREASED DOSE TO 300MG THREE TIMES A DAY ;ONGOING: NO
     Route: 048
  4. PREDNISONE. [Suspect]
     Active Substance: PREDNISONE
     Indication: BRAIN NEOPLASM
     Route: 065

REACTIONS (4)
  - Diabetes mellitus [Not Recovered/Not Resolved]
  - Hyperphagia [Not Recovered/Not Resolved]
  - Deep vein thrombosis [Not Recovered/Not Resolved]
  - Weight increased [Not Recovered/Not Resolved]
